FAERS Safety Report 21315929 (Version 1)
Quarter: 2022Q3

REPORT INFORMATION
  Report Type: Spontaneous
  Country: US (occurrence: US)
  Receive Date: 20220910
  Receipt Date: 20220910
  Transmission Date: 20221027
  Serious: Yes (Death, Hospitalization, Other)
  Sender: FDA-Public Use
  Company Number: US-drreddys-LIT/USA/22/0154202

PATIENT
  Sex: Male

DRUGS (1)
  1. COLCHICINE [Suspect]
     Active Substance: COLCHICINE
     Indication: Product used for unknown indication
     Dosage: 30 TABLETS OF COLCHICINE 0.6MG

REACTIONS (7)
  - Multiple organ dysfunction syndrome [Fatal]
  - Toxicity to various agents [Fatal]
  - Shock [Unknown]
  - Hyperlactacidaemia [Unknown]
  - Leukocytosis [Unknown]
  - Intentional overdose [Unknown]
  - Intentional product misuse [Unknown]
